FAERS Safety Report 5385404-5 (Version None)
Quarter: 2007Q3

REPORT INFORMATION
  Report Type: 
  Country: None (occurrence: None)
  Receive Date: 20070709
  Receipt Date: 20070626
  Transmission Date: 20080115
  Serious: Yes (Hospitalization)
  Sender: FDA-Public Use
  Company Number: 2007-160482-NL

PATIENT
  Age: 61 Year
  Sex: Female

DRUGS (6)
  1. MIRTAZAPINE [Suspect]
     Indication: DEPRESSION
     Dosage: 30 MG/DF; ORAL
     Route: 048
     Dates: start: 20070101
  2. MIRTAZAPINE [Suspect]
     Indication: DEPRESSION
     Dosage: 30 MG/DF; ORAL
     Route: 048
     Dates: start: 20070401
  3. ACENOCOUMAROL [Concomitant]
  4. OMEPRAZOLE [Concomitant]
  5. EZETIMIBE [Concomitant]
  6. SIMVASTATIN [Concomitant]

REACTIONS (1)
  - SUPRAVENTRICULAR TACHYCARDIA [None]
